FAERS Safety Report 7604080-1 (Version None)
Quarter: 2011Q3

REPORT INFORMATION
  Report Type: 
  Country: None (occurrence: None)
  Receive Date: 20110711
  Receipt Date: 20110711
  Transmission Date: 20111222
  Serious: No
  Sender: FDA-Public Use
  Company Number: None

PATIENT
  Age: 30 Year
  Sex: Male
  Weight: 79.3795 kg

DRUGS (1)
  1. PROPECIA [Suspect]
     Indication: ANDROGENETIC ALOPECIA
     Dosage: 5MG DAILY PO
     Route: 048
     Dates: start: 20021202, end: 20030315

REACTIONS (2)
  - LIBIDO DECREASED [None]
  - ERECTILE DYSFUNCTION [None]
